FAERS Safety Report 20732743 (Version 1)
Quarter: 2022Q2

REPORT INFORMATION
  Report Type: Spontaneous
  Country: US (occurrence: US)
  Receive Date: 20220420
  Receipt Date: 20220420
  Transmission Date: 20220721
  Serious: No
  Sender: FDA-Public Use
  Company Number: US-PARAGONBIOTECK-2021-US-006982

PATIENT
  Age: 69 Year
  Sex: Male
  Weight: 74.84 kg

DRUGS (5)
  1. PHENYLEPHRINE HYDROCHLORIDE [Suspect]
     Active Substance: PHENYLEPHRINE HYDROCHLORIDE
     Indication: Pupil dilation procedure
     Dosage: ^GUESSES^ 2-3 DROPS PER EYE
     Dates: start: 2017
  2. TROPICAMIDE [Suspect]
     Active Substance: TROPICAMIDE
     Indication: Pupil dilation procedure
     Dosage: UNKNOWN
  3. INSULIN NOS [Concomitant]
     Active Substance: INSULIN NOS
     Indication: Type 2 diabetes mellitus
  4. UNSPECIFIED INGREDIENT [Concomitant]
     Active Substance: UNSPECIFIED INGREDIENT
  5. VITAMIN C [Concomitant]
     Active Substance: ASCORBIC ACID
     Dosage: ^UNTYPICAL^ AMOUNT IN 2 DOSAGE FORMS

REACTIONS (2)
  - Mydriasis [Not Recovered/Not Resolved]
  - Therapeutic product effect prolonged [Not Recovered/Not Resolved]
